FAERS Safety Report 10169780 (Version 6)
Quarter: 2015Q3

REPORT INFORMATION
  Report Type: Spontaneous
  Country: US (occurrence: US)
  Receive Date: 20140513
  Receipt Date: 20150804
  Transmission Date: 20151125
  Serious: Yes (Other)
  Sender: FDA-Public Use
  Company Number: US-MERCK-1405USA002400

PATIENT
  Sex: Female

DRUGS (5)
  1. ALBUTEROL. [Concomitant]
     Active Substance: ALBUTEROL
     Indication: ASTHMA
     Dosage: UNK
     Route: 055
     Dates: start: 1991
  2. FOSAMAX [Suspect]
     Active Substance: ALENDRONATE SODIUM
     Dosage: 70 MG, QW
     Route: 048
     Dates: end: 200708
  3. FOSAMAX [Suspect]
     Active Substance: ALENDRONATE SODIUM
     Indication: OSTEOPOROSIS
     Dosage: 10 MG, QD
     Route: 048
     Dates: start: 199708
  4. SYNTHROID [Concomitant]
     Active Substance: LEVOTHYROXINE SODIUM
     Indication: HYPERTHYROIDISM
     Dosage: UNK
     Route: 048
     Dates: start: 1994
  5. CALCIUM (UNSPECIFIED) (+) VITAMIN D (UNSPECIFIED) [Concomitant]
     Active Substance: CALCIUM CARBONATE\VITAMIN D
     Indication: PRODUCT USED FOR UNKNOWN INDICATION
     Dosage: UNK
     Route: 048
     Dates: start: 1997

REACTIONS (16)
  - Intraductal proliferative breast lesion [Unknown]
  - Tooth disorder [Unknown]
  - Synovial cyst [Unknown]
  - Biopsy breast [Unknown]
  - Femur fracture [Recovering/Resolving]
  - Device failure [Unknown]
  - Endometriosis [Unknown]
  - Tendon disorder [Unknown]
  - Dental plaque [Unknown]
  - Tooth deposit [Unknown]
  - Glucose tolerance impaired [Unknown]
  - Osteoarthritis [Unknown]
  - Osteoporosis [Unknown]
  - Joint effusion [Unknown]
  - Dental caries [Unknown]
  - Tooth repair [Unknown]

NARRATIVE: CASE EVENT DATE: 200208
